FAERS Safety Report 8623427-0 (Version None)
Quarter: 2012Q3

REPORT INFORMATION
  Report Type: 
  Country: None (occurrence: None)
  Receive Date: 20120827
  Receipt Date: 20120815
  Transmission Date: 20120928
  Serious: Yes (Hospitalization)
  Sender: FDA-Public Use
  Company Number: BR-ELI_LILLY_AND_COMPANY-BR201208004783

PATIENT
  Sex: Female

DRUGS (2)
  1. FORTEO [Suspect]
     Indication: OSTEOPOROSIS
     Dosage: 20 UG, QD
     Route: 058
     Dates: start: 20091101
  2. FORTEO [Suspect]
     Dosage: 20 UG, QD
     Route: 058
     Dates: start: 20120801

REACTIONS (7)
  - MEMORY IMPAIRMENT [None]
  - HEADACHE [None]
  - HYPOKINESIA [None]
  - VENOUS OCCLUSION [None]
  - INCORRECT DRUG ADMINISTRATION DURATION [None]
  - CEREBROVASCULAR ACCIDENT [None]
  - HYPERTENSION [None]
